FAERS Safety Report 5528870-4 (Version None)
Quarter: 2007Q4

REPORT INFORMATION
  Report Type: 
  Country: None (occurrence: None)
  Receive Date: 20071113
  Receipt Date: 20070511
  Transmission Date: 20080405
  Serious: No
  Sender: FDA-Public Use
  Company Number: 200711623US

PATIENT
  Age: 58 Year
  Sex: Female

DRUGS (9)
  1. APIDRA [Suspect]
     Indication: DIABETES MELLITUS
     Dosage: 2-5 U
     Dates: start: 20061101
  2. LANTUS [Suspect]
     Indication: DIABETES MELLITUS
     Dosage: 6 U/DAY
     Dates: start: 20061101
  3. OPTICLIK [Suspect]
     Indication: DIABETES MELLITUS
     Dates: start: 20061101
  4. LISINOPRIL [Concomitant]
  5. ASPIRIN [Concomitant]
  6. SYNTHROID [Concomitant]
  7. FOSAMAX [Concomitant]
  8. RALOXIFENE HYDROCHLORIDE (EVISTA) [Concomitant]
  9. INTERFERON BETA [Concomitant]

REACTIONS (1)
  - BLOOD GLUCOSE DECREASED [None]
